FAERS Safety Report 8947056 (Version 1)
Quarter: 2012Q4

REPORT INFORMATION
  Report Type: Report from Study
  Country: GB (occurrence: US)
  Receive Date: 20121205
  Receipt Date: 20121205
  Transmission Date: 20130627
  Serious: Yes (Death, Hospitalization)
  Sender: FDA-Public Use
  Company Number: US-ELI_LILLY_AND_COMPANY-US201212000229

PATIENT
  Age: 77 Year
  Sex: Male
  Weight: 78.3 kg

DRUGS (18)
  1. PEMETREXED [Suspect]
     Indication: HEAD AND NECK CANCER
     Dosage: 500 mg/m2, every 3 weeks
     Route: 042
     Dates: start: 20110301
  2. TARCEVA [Suspect]
     Indication: HEAD AND NECK CANCER
     Dosage: 150 mg, UNK
     Route: 048
     Dates: start: 20110301, end: 20110406
  3. RADIATION [Suspect]
     Indication: HEAD AND NECK CANCER
     Dosage: UNK, qd
     Dates: start: 20110301, end: 20110406
  4. FENOFIBRATE [Concomitant]
  5. PREDNISOLONE ACETATE [Concomitant]
  6. METOPROLOL TARTRATE [Concomitant]
     Dosage: UNK
     Dates: end: 20110328
  7. CRESTOR [Concomitant]
  8. NORVASC [Concomitant]
     Dosage: UNK
     Dates: end: 20110328
  9. ACTOS [Concomitant]
  10. LANSOPRAZOLE [Concomitant]
  11. FLUCONAZOLE [Concomitant]
  12. NYSTATIN [Concomitant]
  13. TRIAMCINOLONE ACETONIDE [Concomitant]
  14. ASPIRIN [Concomitant]
  15. FOLIC ACID [Concomitant]
  16. PROMETHAZINE [Concomitant]
     Indication: NAUSEA
  17. OXYCODONE HCL [Concomitant]
     Indication: PAIN
  18. TRANSDERM-SCOP [Concomitant]

REACTIONS (6)
  - Pneumonia [Fatal]
  - Aspiration [Fatal]
  - Intestinal ischaemia [Not Recovered/Not Resolved]
  - Sepsis [Not Recovered/Not Resolved]
  - Hypotension [Not Recovered/Not Resolved]
  - Dehydration [Not Recovered/Not Resolved]
